FAERS Safety Report 12747690 (Version 1)
Quarter: 2016Q3

REPORT INFORMATION
  Report Type: Spontaneous
  Country: US (occurrence: US)
  Receive Date: 20160915
  Receipt Date: 20160915
  Transmission Date: 20161109
  Serious: No
  Sender: FDA-Public Use
  Company Number: US-JAZZ-2016-US-009697

PATIENT
  Sex: Female

DRUGS (27)
  1. LORAZEPAM. [Concomitant]
     Active Substance: LORAZEPAM
  2. BYSTOLIC [Concomitant]
     Active Substance: NEBIVOLOL HYDROCHLORIDE
  3. OXYCODONE HCL IR [Concomitant]
  4. PERCODAN [Concomitant]
     Active Substance: ASPIRIN\OXYCODONE HYDROCHLORIDE
  5. VITAMIN C [Concomitant]
     Active Substance: ASCORBIC ACID
  6. ZINC [Concomitant]
     Active Substance: ZINC\ZINC CHLORIDE
  7. BUTALBITAL COMPOUND [Concomitant]
     Active Substance: ASPIRIN\BUTALBITAL\CAFFEINE
  8. XYREM [Suspect]
     Active Substance: SODIUM OXYBATE
     Indication: HYPERSOMNIA
     Dosage: 3 G, BID
     Route: 048
     Dates: start: 201001, end: 201002
  9. HUMIRA [Concomitant]
     Active Substance: ADALIMUMAB
  10. FISH OIL [Concomitant]
     Active Substance: FISH OIL
  11. LYRICA [Concomitant]
     Active Substance: PREGABALIN
  12. SOMA [Concomitant]
     Active Substance: CARISOPRODOL
  13. XYREM [Suspect]
     Active Substance: SODIUM OXYBATE
     Dosage: DOSE ADJUSTMENTS
     Route: 048
  14. FOSAMAX [Concomitant]
     Active Substance: ALENDRONATE SODIUM
  15. ORENCIA [Concomitant]
     Active Substance: ABATACEPT
  16. RESTORIL [Concomitant]
     Active Substance: TEMAZEPAM
  17. CALCIUM [Concomitant]
     Active Substance: CALCIUM
  18. XANAX XR [Concomitant]
     Active Substance: ALPRAZOLAM
  19. COMPAZINE [Concomitant]
     Active Substance: PROCHLORPERAZINE MALEATE
  20. FOLIC ACID. [Concomitant]
     Active Substance: FOLIC ACID
  21. LISINOPRIL. [Concomitant]
     Active Substance: LISINOPRIL
  22. METHADONE HCL [Concomitant]
     Active Substance: METHADONE HYDROCHLORIDE
  23. XARELTO [Concomitant]
     Active Substance: RIVAROXABAN
  24. XYREM [Suspect]
     Active Substance: SODIUM OXYBATE
     Dosage: 4.5 G, BID
     Route: 048
     Dates: start: 201509
  25. IMITREX [Concomitant]
     Active Substance: SUMATRIPTAN SUCCINATE
  26. TOPAMAX [Concomitant]
     Active Substance: TOPIRAMATE
  27. ZOLPIDEM TARTRATE. [Concomitant]
     Active Substance: ZOLPIDEM TARTRATE

REACTIONS (1)
  - Blood cholesterol increased [Unknown]
